FAERS Safety Report 7852608-9 (Version None)
Quarter: 2011Q4

REPORT INFORMATION
  Report Type: 
  Country: None (occurrence: None)
  Receive Date: 20111026
  Receipt Date: 20111003
  Transmission Date: 20120403
  Serious: Yes (Other)
  Sender: FDA-Public Use
  Company Number: US-GLAXOSMITHKLINE-A0948025A

PATIENT
  Age: 74 Year
  Sex: Female

DRUGS (14)
  1. COREG [Concomitant]
  2. COZAAR [Concomitant]
  3. VENTOLIN [Concomitant]
  4. PROMACTA [Suspect]
     Indication: IDIOPATHIC THROMBOCYTOPENIC PURPURA
     Dosage: 50MG PER DAY
     Route: 048
     Dates: start: 20110623, end: 20111003
  5. LANTUS [Concomitant]
  6. ZANTAC [Concomitant]
  7. METROGEL [Concomitant]
  8. LOTRISONE [Concomitant]
  9. ULTRAM [Concomitant]
  10. FLONASE [Concomitant]
  11. DESYREL [Concomitant]
  12. ADVAIR DISKUS 100/50 [Concomitant]
  13. CARDIZEM [Concomitant]
  14. NOVOLOG [Concomitant]

REACTIONS (3)
  - HEPATIC ENZYME INCREASED [None]
  - IDIOPATHIC THROMBOCYTOPENIC PURPURA [None]
  - DRUG INEFFECTIVE [None]
